FAERS Safety Report 4924692-3 (Version None)
Quarter: 2006Q1

REPORT INFORMATION
  Report Type: 
  Country: None (occurrence: None)
  Receive Date: 20060222
  Receipt Date: 20060206
  Transmission Date: 20060701
  Serious: Yes (Hospitalization)
  Sender: FDA-Public Use
  Company Number: GBR-2006-0002101

PATIENT
  Age: 68 Year
  Sex: Male

DRUGS (4)
  1. OXYCONTIN [Suspect]
     Indication: RIB FRACTURE
     Dosage: 20 MG, DAILY, ORAL
     Route: 048
     Dates: start: 20050803, end: 20050815
  2. TRAMADOL HCL [Suspect]
     Dosage: 200 MG, DAILY, ORAL
     Route: 048
     Dates: start: 20050820, end: 20050912
  3. OXYCODONE HCL [Concomitant]
  4. LACTULOSE [Concomitant]

REACTIONS (10)
  - ANOREXIA [None]
  - BLOOD ANTIDIURETIC HORMONE INCREASED [None]
  - CONSTIPATION [None]
  - DYSPNOEA [None]
  - HYPOAESTHESIA [None]
  - INFECTION [None]
  - OEDEMA PERIPHERAL [None]
  - PAIN IN EXTREMITY [None]
  - POLYNEUROPATHY [None]
  - PYREXIA [None]
